FAERS Safety Report 24177694 (Version 1)
Quarter: 2024Q3

REPORT INFORMATION
  Report Type: Report from Study
  Country: JP (occurrence: JP)
  Receive Date: 20240806
  Receipt Date: 20240806
  Transmission Date: 20241017
  Serious: Yes (Other)
  Sender: TEVA
  Company Number: JP-TEVA-VS-3227414

PATIENT

DRUGS (4)
  1. IRINOTECAN [Suspect]
     Active Substance: IRINOTECAN
     Indication: Metastatic carcinoma of the bladder
     Dosage: 2-HOUR INFUSION ON DAY 1, PART OF FOLFIRI REGIMEN
     Route: 065
  2. LEUCOVORIN [Suspect]
     Active Substance: LEUCOVORIN\LEUCOVORIN CALCIUM
     Indication: Metastatic carcinoma of the bladder
     Dosage: 2-HOUR INFUSION ON DAY 1, PART OF FOLFIRI REGIMEN
     Route: 065
  3. FLUOROURACIL [Suspect]
     Active Substance: FLUOROURACIL
     Indication: Metastatic carcinoma of the bladder
     Dosage: 46-HOUR INFUSION OVER DAY 1 AND 2, PART OF FOLFIRI REGIMEN
     Route: 065
  4. FLUOROURACIL [Suspect]
     Active Substance: FLUOROURACIL
     Indication: Metastatic carcinoma of the bladder
     Dosage: BOLUS
     Route: 065

REACTIONS (1)
  - Diarrhoea [Unknown]
